FAERS Safety Report 8345104-6 (Version None)
Quarter: 2012Q2

REPORT INFORMATION
  Report Type: 
  Country: None (occurrence: None)
  Receive Date: 20120508
  Receipt Date: 20120425
  Transmission Date: 20120825
  Serious: Yes (Hospitalization, Other)
  Sender: FDA-Public Use
  Company Number: US-COVIDIEN/TYCO HEALTHCARE/MALLINCKRODT-T201201495

PATIENT
  Sex: Female
  Weight: 48.98 kg

DRUGS (4)
  1. PREDNISONE TAB [Concomitant]
     Indication: CROHN'S DISEASE
     Dosage: 10 MG
  2. NUCYNTA [Concomitant]
     Indication: BREAKTHROUGH PAIN
     Dosage: UNK
  3. FENTANYL-100 [Suspect]
     Indication: PAIN
     Dosage: 100 MCG/HR Q 72HR
     Route: 062
  4. FENTANYL-100 [Suspect]
     Dosage: 2- 100 MCG/HR PATCHES Q3 DAYS

REACTIONS (3)
  - PELVIC FRACTURE [None]
  - FALL [None]
  - DRUG INEFFECTIVE [None]
